FAERS Safety Report 18890030 (Version 1)
Quarter: 2021Q1

REPORT INFORMATION
  Report Type: Spontaneous
  Country: US (occurrence: US)
  Receive Date: 20210214
  Receipt Date: 20210214
  Transmission Date: 20210420
  Serious: No
  Sender: FDA-Public Use
  Company Number: US-TEVA-2021-US-1875459

PATIENT
  Sex: Female

DRUGS (1)
  1. LOSEASONIQUE [Suspect]
     Active Substance: ETHINYL ESTRADIOL\LEVONORGESTREL
     Indication: HYPOTENSION
     Dosage: LEVONORGESTREL / ETHINYL ESTRADIOL TABLETS / ETHINYL ESTRADIOL: 0.1 MG / 0.02 MG / 0.01 MG
     Route: 065
     Dates: start: 202101

REACTIONS (4)
  - Off label use [Unknown]
  - Drug ineffective [Unknown]
  - Dizziness [Unknown]
  - Dry eye [Unknown]
